FAERS Safety Report 8463385-5 (Version None)
Quarter: 2012Q2

REPORT INFORMATION
  Report Type: 
  Country: None (occurrence: None)
  Receive Date: 20120625
  Receipt Date: 20120613
  Transmission Date: 20120825
  Serious: Yes (Hospitalization, Other)
  Sender: FDA-Public Use
  Company Number: US-MERCK-1201USA02271

PATIENT
  Age: 69 Year
  Sex: Female
  Weight: 75 kg

DRUGS (5)
  1. FOSAMAX [Suspect]
     Route: 048
     Dates: start: 20090319, end: 20100310
  2. FOSAMAX [Suspect]
     Indication: OSTEOPOROSIS
     Route: 048
     Dates: start: 20011011, end: 20050401
  3. FORTEO [Suspect]
     Indication: OSTEOPOROSIS
     Route: 051
     Dates: start: 20051101, end: 20070101
  4. ACTONEL [Suspect]
     Indication: OSTEOPOROSIS
     Route: 048
     Dates: start: 20070101, end: 20090301
  5. ALENDRONATE SODIUM [Suspect]
     Route: 065
     Dates: start: 20090301, end: 20100101

REACTIONS (55)
  - FEMUR FRACTURE [None]
  - BASAL CELL CARCINOMA [None]
  - BLADDER DISORDER [None]
  - SQUAMOUS CELL CARCINOMA [None]
  - GAIT DISTURBANCE [None]
  - PUBIS FRACTURE [None]
  - MENISCUS LESION [None]
  - ANOSMIA [None]
  - APPENDIX DISORDER [None]
  - FALL [None]
  - DIVERTICULITIS [None]
  - URINARY TRACT INFECTION [None]
  - HYPERTENSION [None]
  - BURSITIS [None]
  - KIDNEY INFECTION [None]
  - RENAL FAILURE CHRONIC [None]
  - BREAST DISORDER [None]
  - ANAEMIA [None]
  - BARRETT'S OESOPHAGUS [None]
  - SPINAL COLUMN STENOSIS [None]
  - MUSCLE ATROPHY [None]
  - URINARY INCONTINENCE [None]
  - TERMINAL INSOMNIA [None]
  - HIATUS HERNIA [None]
  - INGUINAL HERNIA [None]
  - HYPERCHOLESTEROLAEMIA [None]
  - BLINDNESS [None]
  - CARDIAC MURMUR [None]
  - NASAL POLYPS [None]
  - HYPOTHYROIDISM [None]
  - HYPERLIPIDAEMIA [None]
  - SPONDYLOLISTHESIS [None]
  - FINGER DEFORMITY [None]
  - CYSTOCELE [None]
  - GASTROOESOPHAGEAL REFLUX DISEASE [None]
  - ARTHRITIS [None]
  - DIVERTICULUM [None]
  - VERTIGO [None]
  - SPIDER NAEVUS [None]
  - CAROTID BRUIT [None]
  - RHINITIS ALLERGIC [None]
  - RAYNAUD'S PHENOMENON [None]
  - VARICOSE VEIN [None]
  - CAROTID ARTERY STENOSIS [None]
  - HIP FRACTURE [None]
  - ABDOMINAL DISCOMFORT [None]
  - CHRONIC SINUSITIS [None]
  - PERONEAL NERVE PALSY [None]
  - OSTEOARTHRITIS [None]
  - VENOUS INSUFFICIENCY [None]
  - CONVERSION DISORDER [None]
  - CONSTIPATION [None]
  - PYELONEPHRITIS [None]
  - OEDEMA PERIPHERAL [None]
  - HAEMORRHOIDS [None]
